FAERS Safety Report 20808448 (Version 1)
Quarter: 2022Q2

REPORT INFORMATION
  Report Type: Spontaneous
  Country: US (occurrence: US)
  Receive Date: 20220510
  Receipt Date: 20220510
  Transmission Date: 20220720
  Serious: Yes (Hospitalization, Other)
  Sender: FDA-Public Use
  Company Number: US-JNJFOC-20220515685

PATIENT
  Age: 66 Year
  Sex: Male
  Weight: 81.720 kg

DRUGS (4)
  1. ZYTIGA [Suspect]
     Active Substance: ABIRATERONE ACETATE
     Indication: Prostate cancer
     Dosage: THE PATIENT RECEIVED RECENT DOSE OF ABIRATERONE ACETATE 17-DEC-2021.
     Route: 048
     Dates: start: 20210907, end: 20211217
  2. APALUTAMIDE [Suspect]
     Active Substance: APALUTAMIDE
     Indication: Prostate cancer
     Dosage: THE PATIENT RECEIVED RECENT DOSE OF APALUTAMIDE 17-DEC-2021.
     Route: 048
     Dates: start: 20210827, end: 20211217
  3. PREDNISONE [Suspect]
     Active Substance: PREDNISONE
     Indication: Prostate cancer
     Route: 065
     Dates: start: 20210907
  4. LUPRON [Suspect]
     Active Substance: LEUPROLIDE ACETATE
     Indication: Prostate cancer
     Route: 065
     Dates: start: 20210907

REACTIONS (3)
  - Syncope [Not Recovered/Not Resolved]
  - Cellulitis [Unknown]
  - Oesophagitis [Unknown]

NARRATIVE: CASE EVENT DATE: 20211111
